FAERS Safety Report 4777399-X (Version None)
Quarter: 2005Q3

REPORT INFORMATION
  Report Type: 
  Country: None (occurrence: None)
  Receive Date: 20050915
  Receipt Date: 20050830
  Transmission Date: 20060218
  Serious: Yes (Death, Hospitalization)
  Sender: FDA-Public Use
  Company Number: USA030537573

PATIENT
  Age: 37 Year
  Sex: Male

DRUGS (2)
  1. GEMZAR [Suspect]
     Indication: NON-HODGKIN'S LYMPHOMA
     Dosage: 1000 MG/M2
  2. VINCRISTINE [Concomitant]

REACTIONS (14)
  - CARDIAC FAILURE CONGESTIVE [None]
  - CARDIAC TAMPONADE [None]
  - CHEST PAIN [None]
  - DISEASE PROGRESSION [None]
  - HYPERTENSION [None]
  - HYPOTENSION [None]
  - HYPOXIA [None]
  - INFECTION [None]
  - LYMPHOMA [None]
  - PERICARDIAL EFFUSION [None]
  - PERICARDITIS [None]
  - PERICARDITIS CONSTRICTIVE [None]
  - RECALL PHENOMENON [None]
  - TACHYCARDIA [None]
